FAERS Safety Report 6380515-X (Version None)
Quarter: 2009Q3

REPORT INFORMATION
  Report Type: 
  Country: None (occurrence: None)
  Receive Date: 20090924
  Receipt Date: 20090909
  Transmission Date: 20100115
  Serious: Yes (Hospitalization)
  Sender: FDA-Public Use
  Company Number: 001736

PATIENT
  Age: 27 Year
  Sex: Female

DRUGS (2)
  1. ACETAMINOPHEN W/ CODEINE [Suspect]
  2. ACETAMINOPHEN [Suspect]

REACTIONS (12)
  - ACUTE HEPATIC FAILURE [None]
  - AMMONIA INCREASED [None]
  - BLOOD GLUCOSE DECREASED [None]
  - BODY TEMPERATURE INCREASED [None]
  - BRAIN OEDEMA [None]
  - DRUG TOXICITY [None]
  - ENCEPHALOPATHY [None]
  - HEART RATE INCREASED [None]
  - HYPERVENTILATION [None]
  - HYPOTHERMIA [None]
  - LETHARGY [None]
  - OVERDOSE [None]
